FAERS Safety Report 10159821 (Version 1)
Quarter: 2014Q2

REPORT INFORMATION
  Report Type: Spontaneous
  Country: US (occurrence: US)
  Receive Date: 20140508
  Receipt Date: 20140508
  Transmission Date: 20141212
  Serious: No
  Sender: FDA-Public Use
  Company Number: US-GLAXOSMITHKLINE-A1033612A

PATIENT
  Age: 74 Year
  Sex: Female
  Weight: 78.2 kg

DRUGS (14)
  1. TYKERB [Suspect]
     Indication: ILL-DEFINED DISORDER
     Dosage: 1500MG PER DAY
     Route: 048
     Dates: start: 20130117
  2. DEXAMETHASONE [Concomitant]
  3. ATROPINE + DIPHENOXYLATE [Concomitant]
  4. ALEVE [Concomitant]
  5. PROCHLORPERAZINE [Concomitant]
  6. OXYCODONE [Concomitant]
  7. AMITRIPTYLINE [Concomitant]
  8. SINGULAIR [Concomitant]
  9. BUPROPION [Concomitant]
  10. PAROXETINE [Concomitant]
  11. ATENOLOL [Concomitant]
  12. LEVOTHYROXINE [Concomitant]
  13. POTASSIUM [Concomitant]
  14. VITAMIN B-12 [Concomitant]

REACTIONS (1)
  - Diarrhoea [Recovered/Resolved]
